FAERS Safety Report 23462560 (Version 5)
Quarter: 2024Q2

REPORT INFORMATION
  Report Type: Spontaneous
  Country: US (occurrence: US)
  Receive Date: 20240131
  Receipt Date: 20240411
  Transmission Date: 20240716
  Serious: Yes (Hospitalization, Other)
  Sender: FDA-Public Use
  Company Number: US-BIOGEN-2024BI01247455

PATIENT
  Age: 50 Year
  Sex: Male

DRUGS (1)
  1. TYSABRI [Suspect]
     Active Substance: NATALIZUMAB
     Indication: Multiple sclerosis
     Route: 050
     Dates: start: 20230428, end: 20231215

REACTIONS (7)
  - Syncope [Recovered/Resolved]
  - Blood pressure decreased [Recovered/Resolved]
  - Cardio-respiratory arrest [Recovered/Resolved]
  - General physical health deterioration [Recovered/Resolved]
  - Small cell lung cancer [Unknown]
  - Multiple sclerosis relapse [Unknown]
  - Vomiting [Unknown]

NARRATIVE: CASE EVENT DATE: 20231220
